FAERS Safety Report 7608652-X (Version None)
Quarter: 2011Q3

REPORT INFORMATION
  Report Type: 
  Country: None (occurrence: None)
  Receive Date: 20110714
  Receipt Date: 20110708
  Transmission Date: 20111222
  Serious: Yes (Other)
  Sender: FDA-Public Use
  Company Number: US-B.I. PHARMACEUTICALS,INC./RIDGEFIELD-2011-DE-03994GD

PATIENT

DRUGS (8)
  1. CLONIDINE [Suspect]
     Indication: PROCEDURAL PAIN
     Dosage: 25 MCG
  2. FENTANYL [Concomitant]
     Indication: ANAESTHESIA
     Dosage: TITRATED TO MAINTAIN SPONTANEOUS VENTILATION (TO A MAXIMUM OF 0.5 MCG/KG)
  3. BUPIVACAINE HCL [Suspect]
     Indication: PROCEDURAL PAIN
     Dosage: 0.5% IN 1.5 ML MIXTURE
  4. GLYCOPYRROLATE [Concomitant]
     Indication: ANAESTHESIA
     Dosage: 0.1 MG/KG
  5. DEXAMETHASONE [Concomitant]
     Dosage: 0.5 MG/KG
     Route: 042
  6. PROPOFOL [Concomitant]
     Indication: ENDOTRACHEAL INTUBATION
     Dosage: UP TO 3 MG/KG AS NEEDED FOR DEEP INTUBATION
  7. SEVOFLURANE [Concomitant]
     Indication: INDUCTION OF ANAESTHESIA
  8. LIDOCAINE [Suspect]
     Indication: PROCEDURAL PAIN
     Dosage: 1% IN 1.5 ML MIXTURE

REACTIONS (1)
  - TONGUE PARALYSIS [None]
